FAERS Safety Report 10795185 (Version 1)
Quarter: 2015Q1

REPORT INFORMATION
  Report Type: Spontaneous
  Country: US (occurrence: US)
  Receive Date: 20150214
  Receipt Date: 20150214
  Transmission Date: 20150721
  Serious: No
  Sender: FDA-Public Use
  Company Number: US-GLAXOSMITHKLINE-A1074793A

PATIENT

DRUGS (20)
  1. SANCTURA [Concomitant]
     Active Substance: TROSPIUM CHLORIDE
  2. DUONEB [Concomitant]
     Active Substance: ALBUTEROL SULFATE\IPRATROPIUM BROMIDE
  3. NIZORAL CREAM [Concomitant]
  4. VENTOLIN [Suspect]
     Active Substance: ALBUTEROL SULFATE
     Indication: DYSPNOEA
     Route: 055
     Dates: start: 1979
  5. MACRODANTIN [Concomitant]
     Active Substance: NITROFURANTOIN
  6. OXYGEN. [Concomitant]
     Active Substance: OXYGEN
  7. BONIVA [Concomitant]
     Active Substance: IBANDRONATE SODIUM
  8. FLONASE [Concomitant]
     Active Substance: FLUTICASONE PROPIONATE
  9. KLONOPIN [Concomitant]
     Active Substance: CLONAZEPAM
  10. MORPHINE [Concomitant]
     Active Substance: MORPHINE
  11. ADDERALL XR [Concomitant]
     Active Substance: AMPHETAMINE ASPARTATE\AMPHETAMINE SULFATE\DEXTROAMPHETAMINE SACCHARATE\DEXTROAMPHETAMINE SULFATE
  12. NIZORAL [Concomitant]
     Active Substance: KETOCONAZOLE
     Route: 061
  13. NYSTATIN POWDER [Concomitant]
  14. ALLEGRA [Concomitant]
     Active Substance: FEXOFENADINE HYDROCHLORIDE
  15. DURAGESIC [Concomitant]
     Active Substance: FENTANYL
  16. MS CONTIN [Concomitant]
     Active Substance: MORPHINE SULFATE
  17. LEXAPRO [Concomitant]
     Active Substance: ESCITALOPRAM OXALATE
  18. LIDOCAINE. [Concomitant]
     Active Substance: LIDOCAINE
  19. ADVAIR DISKUS [Concomitant]
     Active Substance: FLUTICASONE PROPIONATE\SALMETEROL XINAFOATE
  20. BACLOFEN. [Concomitant]
     Active Substance: BACLOFEN

REACTIONS (4)
  - Psychomotor hyperactivity [Unknown]
  - Headache [Not Recovered/Not Resolved]
  - Overdose [Unknown]
  - Neck pain [Unknown]
